FAERS Safety Report 10666503 (Version 1)
Quarter: 2014Q4

REPORT INFORMATION
  Report Type: Report from Study
  Country: BR (occurrence: BR)
  Receive Date: 20141221
  Receipt Date: 20141221
  Transmission Date: 20150529
  Serious: Yes (Other)
  Sender: FDA-Public Use
  Company Number: BR-ABBVIE-14K-020-1322025-00

PATIENT
  Age: 73 Year
  Sex: Female
  Weight: 72 kg

DRUGS (6)
  1. SIMECO PLUS [Concomitant]
     Indication: GASTRIC DISORDER
     Dosage: 5 ML AFTER MEALS
     Route: 048
  2. AMOXICILLIN. [Concomitant]
     Active Substance: AMOXICILLIN
     Indication: ANTIBIOTIC THERAPY
     Route: 048
     Dates: start: 20141129, end: 20141209
  3. NIMESULIDE [Concomitant]
     Active Substance: NIMESULIDE
     Indication: BONE DISORDER
     Route: 048
     Dates: start: 20141212
  4. BETATRINTA [Concomitant]
     Indication: PAIN
     Dosage: 1 INJECTION
     Route: 050
  5. PANTOPRAZOLE [Concomitant]
     Active Substance: PANTOPRAZOLE SODIUM
     Indication: GASTRIC DISORDER
     Route: 048
  6. HUMIRA [Suspect]
     Active Substance: ADALIMUMAB
     Indication: RHEUMATOID ARTHRITIS
     Route: 058

REACTIONS (7)
  - Joint effusion [Unknown]
  - Asthenia [Unknown]
  - Vomiting [Recovered/Resolved]
  - Pain [Not Recovered/Not Resolved]
  - Diarrhoea [Recovered/Resolved]
  - Purulence [Unknown]
  - Hypophagia [Recovered/Resolved]

NARRATIVE: CASE EVENT DATE: 20141205
